FAERS Safety Report 18940775 (Version 1)
Quarter: 2021Q1

REPORT INFORMATION
  Report Type: Spontaneous
  Country: US (occurrence: US)
  Receive Date: 20210225
  Receipt Date: 20210225
  Transmission Date: 20210420
  Serious: Yes (Other)
  Sender: FDA-Public Use
  Company Number: None

PATIENT

DRUGS (2)
  1. NEOMYCIN AND POLYMYXIN B SULFATES, AND BACITRACIN ZINC [Suspect]
     Active Substance: BACITRACIN ZINC\NEOMYCIN SULFATE\POLYMYXIN B SULFATE
     Route: 047
  2. ERYTHROMYCIN OPHTHALMIC OINTMENT, USP 0.5% (STERILE) [Suspect]
     Active Substance: ERYTHROMYCIN
     Route: 047

REACTIONS (2)
  - Intercepted product storage error [None]
  - Product packaging confusion [None]

NARRATIVE: CASE EVENT DATE: 20210225
